FAERS Safety Report 12186696 (Version 1)
Quarter: 2016Q1

REPORT INFORMATION
  Report Type: Spontaneous
  Country: US (occurrence: None)
  Receive Date: 20160316
  Receipt Date: 20160316
  Transmission Date: 20160526
  Serious: Yes (Hospitalization)
  Sender: FDA-Public Use
  Company Number: None

PATIENT
  Age: 71 Year
  Sex: Male
  Weight: 73.8 kg

DRUGS (1)
  1. WARFARIN [Suspect]
     Active Substance: WARFARIN
     Indication: DEEP VEIN THROMBOSIS
     Route: 048
     Dates: start: 20030808, end: 20150715

REACTIONS (6)
  - Fall [None]
  - Head injury [None]
  - Refusal of treatment by patient [None]
  - Balance disorder [None]
  - International normalised ratio decreased [None]
  - Subarachnoid haemorrhage [None]

NARRATIVE: CASE EVENT DATE: 20150715
